FAERS Safety Report 5422010-8 (Version None)
Quarter: 2007Q3

REPORT INFORMATION
  Report Type: 
  Country: None (occurrence: None)
  Receive Date: 20070822
  Receipt Date: 20070820
  Transmission Date: 20080115
  Serious: Yes (Hospitalization)
  Sender: FDA-Public Use
  Company Number: FR-BRISTOL-MYERS SQUIBB COMPANY-13883632

PATIENT
  Age: 14 Year
  Sex: Female

DRUGS (8)
  1. ETOPOPHOS [Suspect]
     Dosage: 100 MILLIGRAM LYOPHILISATE FOR PARENTAL USE(60 MG/KG)
     Route: 042
     Dates: start: 20070706, end: 20070706
  2. THYMOGLOBULIN [Suspect]
     Dosage: THYMOGLOBULINE- THEARPY DATES-6,8 AND 9TH JULY 2007
     Route: 042
     Dates: start: 20070706
  3. SOLU-MEDROL [Concomitant]
     Route: 042
     Dates: start: 20070703
  4. POLARAMINE [Concomitant]
     Dosage: 1 DOSAGE FORM= 5 MG/ML SOLUTION
     Route: 042
     Dates: start: 20070706
  5. PERFALGAN [Concomitant]
     Route: 042
     Dates: start: 20070706
  6. BACTRIM [Concomitant]
     Route: 048
     Dates: start: 20070101, end: 20070710
  7. ZOFRAN [Concomitant]
     Route: 042
  8. ZANTAC [Concomitant]
     Route: 048

REACTIONS (2)
  - BLOOD CREATININE INCREASED [None]
  - RENAL FAILURE ACUTE [None]
